FAERS Safety Report 17360938 (Version 1)
Quarter: 2020Q1

REPORT INFORMATION
  Report Type: Spontaneous
  Country: US (occurrence: US)
  Receive Date: 20200131
  Receipt Date: 20200131
  Transmission Date: 20200409
  Serious: Yes (Death, Life-Threatening, Hospitalization, Disabling)
  Sender: FDA-Public Use
  Company Number: None

PATIENT
  Age: 67 Year
  Sex: Male
  Weight: 75.6 kg

DRUGS (10)
  1. PLAVIX [Concomitant]
     Active Substance: CLOPIDOGREL BISULFATE
  2. LISINOPRIL. [Concomitant]
     Active Substance: LISINOPRIL
  3. ASPIRIN 81MG [Concomitant]
     Active Substance: ASPIRIN
  4. LEVOTHYROXINE. [Concomitant]
     Active Substance: LEVOTHYROXINE
  5. ELIQUIS [Concomitant]
     Active Substance: APIXABAN
  6. STIVARGA [Suspect]
     Active Substance: REGORAFENIB
     Indication: COLON CANCER METASTATIC
     Dosage: ?          QUANTITY:2 CAPSULE(S);?
     Route: 048
     Dates: start: 20190626, end: 20190708
  7. IRON [Concomitant]
     Active Substance: IRON
  8. VERAPAMIL [Concomitant]
     Active Substance: VERAPAMIL HYDROCHLORIDE
  9. GLIPAZIDE [Concomitant]
  10. METFORMIN [Concomitant]
     Active Substance: METFORMIN HYDROCHLORIDE

REACTIONS (19)
  - Dysphonia [None]
  - Nausea [None]
  - Dizziness [None]
  - Haemorrhage [None]
  - Chromaturia [None]
  - Asthenia [None]
  - Myocardial infarction [None]
  - Decreased appetite [None]
  - Vomiting [None]
  - Sleep disorder [None]
  - Chest pain [None]
  - Urinary tract infection [None]
  - Fatigue [None]
  - Hypertension [None]
  - Jaundice [None]
  - Hepatotoxicity [None]
  - Dyspnoea [None]
  - Myocardial ischaemia [None]
  - Blister [None]

NARRATIVE: CASE EVENT DATE: 20190626
